FAERS Safety Report 7236583-6 (Version None)
Quarter: 2011Q1

REPORT INFORMATION
  Report Type: 
  Country: None (occurrence: None)
  Receive Date: 20110120
  Receipt Date: 20110112
  Transmission Date: 20110831
  Serious: Yes (Hospitalization)
  Sender: FDA-Public Use
  Company Number: CH-PFIZER INC-2011012916

PATIENT
  Age: 27 Year
  Sex: Female

DRUGS (4)
  1. LITHIUM [Suspect]
     Indication: BIPOLAR DISORDER
     Dosage: 400 MG, 1X/DAY
     Route: 048
     Dates: start: 20101104, end: 20101116
  2. SEROQUEL [Suspect]
     Dosage: UNK
     Route: 048
  3. CITALOPRAM [Suspect]
     Indication: BIPOLAR DISORDER
     Dosage: 20 MG, 1X/DAY
     Route: 048
  4. PANTOZOL [Suspect]
     Dosage: 40 MG, 1X/DAY
     Route: 048

REACTIONS (6)
  - HYPERREFLEXIA [None]
  - MUSCLE CONTRACTIONS INVOLUNTARY [None]
  - SEROTONIN SYNDROME [None]
  - HEADACHE [None]
  - NAUSEA [None]
  - HYPERTONIA [None]
